FAERS Safety Report 10386244 (Version 1)
Quarter: 2014Q3

REPORT INFORMATION
  Report Type: Spontaneous
  Country: DE (occurrence: DE)
  Receive Date: 20140815
  Receipt Date: 20140815
  Transmission Date: 20150326
  Serious: Yes (Other)
  Sender: FDA-Public Use
  Company Number: PHHY2014DE101301

PATIENT
  Sex: Male

DRUGS (2)
  1. TEGRETAL [Suspect]
     Active Substance: CARBAMAZEPINE
     Dosage: 4000 MG, DAILY (4 X 1000 MG DAILY)
  2. TEGRETAL [Suspect]
     Active Substance: CARBAMAZEPINE
     Dosage: UNK UKN, UNK

REACTIONS (4)
  - Drug level increased [Unknown]
  - Prescribed overdose [Unknown]
  - Convulsion [Unknown]
  - Overdose [Unknown]
